FAERS Safety Report 15044583 (Version 11)
Quarter: 2019Q4

REPORT INFORMATION
  Report Type: Spontaneous
  Country: US (occurrence: US)
  Receive Date: 20180621
  Receipt Date: 20191113
  Transmission Date: 20200122
  Serious: Yes (Hospitalization, Other)
  Sender: FDA-Public Use
  Company Number: US-INCYTE CORPORATION-2018IN005870

PATIENT

DRUGS (16)
  1. JAKAFI [Suspect]
     Active Substance: RUXOLITINIB
     Dosage: 10 MG, QAM / 20 MG, QPM
     Route: 048
     Dates: start: 20170902
  2. JAKAFI [Suspect]
     Active Substance: RUXOLITINIB
     Dosage: 1X10 MG, QAM / 2X10 MG, QPM
     Route: 048
     Dates: start: 20170902
  3. NITROFURANTOIN MONOHYDRATE [Concomitant]
     Active Substance: NITROFURANTOIN MONOHYDRATE
     Indication: PRODUCT USED FOR UNKNOWN INDICATION
     Route: 065
  4. JAKAFI [Suspect]
     Active Substance: RUXOLITINIB
     Dosage: 1X10 MG, QAM / 2X10 MG, QPM
     Route: 048
     Dates: start: 20170902
  5. CRANBERRY PLUS VITAMIN C [Concomitant]
     Indication: PRODUCT USED FOR UNKNOWN INDICATION
     Dosage: UNK
     Route: 065
  6. ASPIRIN                            /00002701/ [Concomitant]
     Active Substance: ASPIRIN
     Indication: PRODUCT USED FOR UNKNOWN INDICATION
     Dosage: UNK
     Route: 065
  7. MULTIVITAMIN ADULT                      /00097801/ [Concomitant]
     Indication: PRODUCT USED FOR UNKNOWN INDICATION
     Dosage: UNK
     Route: 065
  8. JAKAFI [Suspect]
     Active Substance: RUXOLITINIB
     Indication: MYELOPROLIFERATIVE NEOPLASM
     Dosage: 30 MILLIGRAM, BID
     Route: 048
     Dates: start: 20170830
  9. JAKAFI [Suspect]
     Active Substance: RUXOLITINIB
     Dosage: 10 MILLIGRAM, BID
     Route: 048
     Dates: start: 20170902
  10. JAKAFI [Suspect]
     Active Substance: RUXOLITINIB
     Dosage: 1X10 MG, QAM / 2X10 MG, QPM
     Route: 048
     Dates: start: 20170902
  11. JAKAFI [Suspect]
     Active Substance: RUXOLITINIB
     Dosage: 1X10 MG, QAM / 2X10 MG, QPM
     Route: 048
     Dates: start: 20170902
  12. GABAPENTIN. [Concomitant]
     Active Substance: GABAPENTIN
     Indication: PRODUCT USED FOR UNKNOWN INDICATION
     Dosage: UNK
     Route: 065
  13. CRANBERRY                          /01512301/ [Concomitant]
     Active Substance: CRANBERRY
     Indication: PRODUCT USED FOR UNKNOWN INDICATION
     Route: 065
  14. JAKAFI [Suspect]
     Active Substance: RUXOLITINIB
     Dosage: 1X10 MG, QAM + 2X10  (20MG), QPM
     Route: 048
     Dates: start: 20170902
  15. SUCRALFATE. [Concomitant]
     Active Substance: SUCRALFATE
     Indication: PRODUCT USED FOR UNKNOWN INDICATION
     Dosage: UNK
     Route: 065
  16. JAKAFI [Suspect]
     Active Substance: RUXOLITINIB
     Dosage: 30 MILLIGRAM, QD
     Route: 048
     Dates: start: 20170902

REACTIONS (22)
  - Loss of consciousness [Unknown]
  - Cerebrovascular accident [Unknown]
  - Arthralgia [Unknown]
  - Thrombosis [Unknown]
  - Hypoaesthesia [Unknown]
  - Dysphagia [Unknown]
  - Mouth ulceration [Recovered/Resolved]
  - Cystitis [Unknown]
  - Subdural haematoma [Unknown]
  - Fall [Unknown]
  - Dizziness [Not Recovered/Not Resolved]
  - Herpes zoster [Unknown]
  - Ophthalmic herpes zoster [Unknown]
  - Off label use [Unknown]
  - Peripheral swelling [Unknown]
  - Fatigue [Unknown]
  - Dysphonia [Unknown]
  - Muscle spasms [Unknown]
  - Abdominal pain upper [Unknown]
  - Urinary tract infection [Unknown]
  - Hemiparesis [Unknown]
  - Headache [Not Recovered/Not Resolved]

NARRATIVE: CASE EVENT DATE: 20170902
